FAERS Safety Report 19290177 (Version 1)
Quarter: 2021Q2

REPORT INFORMATION
  Report Type: Report from Study
  Country: US (occurrence: US)
  Receive Date: 20210521
  Receipt Date: 20210521
  Transmission Date: 20210717
  Serious: Yes (Life-Threatening, Other)
  Sender: FDA-Public Use
  Company Number: US-GILEAD-2020-0500460

PATIENT
  Age: 60 Year
  Sex: Female
  Weight: 58.8 kg

DRUGS (9)
  1. HYDROCORTISONE. [Concomitant]
     Active Substance: HYDROCORTISONE
  2. PREDNISONE. [Concomitant]
     Active Substance: PREDNISONE
  3. ENOXAPARIN [Concomitant]
     Active Substance: ENOXAPARIN
  4. TACROLIMUS. [Concomitant]
     Active Substance: TACROLIMUS
     Dosage: 0.5 MG
     Route: 048
     Dates: start: 20201002
  5. HEPARIN [Concomitant]
     Active Substance: HEPARIN SODIUM
  6. REMDESIVIR. [Suspect]
     Active Substance: REMDESIVIR
     Indication: COVID-19
     Dosage: UNK
     Route: 042
     Dates: start: 20201002
  7. CENICRIVIROC MESYLATE. [Suspect]
     Active Substance: CENICRIVIROC MESYLATE
     Indication: COVID-19
     Dosage: UNK
     Route: 048
     Dates: start: 20201005
  8. DEXAMETHASONE. [Concomitant]
     Active Substance: DEXAMETHASONE
  9. BACTRIM [Concomitant]
     Active Substance: SULFAMETHOXAZOLE\TRIMETHOPRIM
     Dosage: 400?80 MG
     Route: 048
     Dates: start: 20201002, end: 20201007

REACTIONS (1)
  - Hyperkalaemia [Recovered/Resolved]

NARRATIVE: CASE EVENT DATE: 20201006
